FAERS Safety Report 6134176-5 (Version None)
Quarter: 2009Q1

REPORT INFORMATION
  Report Type: 
  Country: None (occurrence: None)
  Receive Date: 20090326
  Receipt Date: 20090312
  Transmission Date: 20090719
  Serious: Yes (Other)
  Sender: FDA-Public Use
  Company Number: JP-GENENTECH-270680

PATIENT
  Sex: Male
  Weight: 70 kg

DRUGS (12)
  1. AVASTIN [Suspect]
     Indication: COLORECTAL CANCER METASTATIC
     Dosage: 5 MG/KG, Q2W
     Route: 041
     Dates: start: 20071128, end: 20080528
  2. ELPLAT [Suspect]
     Indication: COLORECTAL CANCER METASTATIC
     Dosage: 60 MG, Q2W
     Route: 041
     Dates: start: 20071128, end: 20080528
  3. FLUOROURACIL [Suspect]
     Indication: COLORECTAL CANCER METASTATIC
     Dosage: 350 MG, Q2W
     Route: 042
     Dates: start: 20071128, end: 20081001
  4. ISOVORIN [Suspect]
     Indication: COLORECTAL CANCER METASTATIC
     Dosage: 300 MG, Q2W
     Route: 041
     Dates: start: 20071128, end: 20081029
  5. AMLODINE [Concomitant]
     Indication: DRUG USE FOR UNKNOWN INDICATION
  6. MAGNESIUM OXIDE [Concomitant]
     Indication: DRUG USE FOR UNKNOWN INDICATION
  7. GLUTAMINE [Concomitant]
     Indication: DRUG USE FOR UNKNOWN INDICATION
  8. SODIUM GUALENATE [Concomitant]
     Indication: DRUG USE FOR UNKNOWN INDICATION
  9. AMOBAN [Concomitant]
     Indication: DRUG USE FOR UNKNOWN INDICATION
  10. HARNAL [Concomitant]
     Indication: DRUG USE FOR UNKNOWN INDICATION
  11. CARBAZOCHROME [Concomitant]
     Indication: DRUG USE FOR UNKNOWN INDICATION
  12. KYTRIL [Concomitant]
     Indication: DRUG USE FOR UNKNOWN INDICATION

REACTIONS (2)
  - NEPHROSCLEROSIS [None]
  - NEPHROTIC SYNDROME [None]
